FAERS Safety Report 12697934 (Version 1)
Quarter: 2016Q3

REPORT INFORMATION
  Report Type: Spontaneous
  Country: BR (occurrence: BR)
  Receive Date: 20160830
  Receipt Date: 20160830
  Transmission Date: 20161109
  Serious: Yes (Other)
  Sender: FDA-Public Use
  Company Number: BR-PFIZER INC-2016401608

PATIENT
  Sex: Male

DRUGS (1)
  1. ALDACTONE [Suspect]
     Active Substance: SPIRONOLACTONE
     Dosage: 1 TABLET 25 MG
     Dates: start: 2014, end: 201607

REACTIONS (2)
  - Breast cancer male [Unknown]
  - Gynaecomastia [Unknown]
